FAERS Safety Report 17717603 (Version 1)
Quarter: 2020Q2

REPORT INFORMATION
  Report Type: Spontaneous
  Country: US (occurrence: US)
  Receive Date: 20200427
  Receipt Date: 20200427
  Transmission Date: 20200714
  Serious: No
  Sender: FDA-Public Use
  Company Number: None

PATIENT
  Age: 70 Year
  Sex: Female
  Weight: 90 kg

DRUGS (6)
  1. VITAMIN D [Concomitant]
     Active Substance: VITAMIN D NOS
  2. KENALOG [Suspect]
     Active Substance: TRIAMCINOLONE ACETONIDE
  3. METOPROLOL. [Concomitant]
     Active Substance: METOPROLOL
  4. GUAIFENESIN. [Concomitant]
     Active Substance: GUAIFENESIN
  5. XARELTO [Concomitant]
     Active Substance: RIVAROXABAN
  6. NORCO [Concomitant]
     Active Substance: ACETAMINOPHEN\HYDROCODONE BITARTRATE

REACTIONS (8)
  - Muscle spasms [None]
  - Infection [None]
  - Squamous cell carcinoma [None]
  - Tooth disorder [None]
  - Osteopenia [None]
  - Pain in extremity [None]
  - Pollakiuria [None]
  - Bladder prolapse [None]
